FAERS Safety Report 4336567-1 (Version None)
Quarter: 2004Q2

REPORT INFORMATION
  Report Type: 
  Country: None (occurrence: None)
  Receive Date: 20040407
  Receipt Date: 20040330
  Transmission Date: 20050107
  Serious: Yes (Other)
  Sender: FDA-Public Use
  Company Number: 200410217BNE

PATIENT
  Age: 86 Year
  Sex: Female

DRUGS (3)
  1. ASPIRIN [Suspect]
     Dosage: 75 MG, TOTAL DAILY, ORAL
     Route: 048
     Dates: end: 20040305
  2. CLOPIDROGREL BISULFATE [Suspect]
     Dosage: 75 MG,  TOTAL DAILY, ORAL
     Route: 048
     Dates: end: 20040305
  3. CELEBREX [Suspect]
     Indication: ARTHRITIS
     Dosage: 200 MG, TOTAL DAILY, ORAL
     Route: 048

REACTIONS (1)
  - CEREBRAL HAEMATOMA [None]
